FAERS Safety Report 9908455 (Version 1)
Quarter: 2014Q1

REPORT INFORMATION
  Report Type: Report from Study
  Country: US (occurrence: US)
  Receive Date: 20140219
  Receipt Date: 20140219
  Transmission Date: 20141002
  Serious: Yes (Other)
  Sender: FDA-Public Use
  Company Number: US-ROCHE-1351317

PATIENT
  Age: 61 Year
  Sex: Female

DRUGS (4)
  1. AVASTIN [Suspect]
     Indication: AGE-RELATED MACULAR DEGENERATION
     Dosage: OFD
     Route: 050
     Dates: start: 20120502
  2. TROPICAMIDE [Concomitant]
     Route: 047
  3. PHENYLEPHRINE [Concomitant]
     Route: 047
  4. LIDOCAINE [Concomitant]
     Indication: ANAESTHESIA
     Route: 057

REACTIONS (5)
  - Eye irritation [Unknown]
  - Vitreous floaters [Unknown]
  - Cataract nuclear [Unknown]
  - Off label use [Unknown]
  - Macular degeneration [Unknown]
